FAERS Safety Report 8183305 (Version 2)
Quarter: 2012Q4

REPORT INFORMATION
  Report Type: 
  Country: CA (occurrence: CA)
  Receive Date: 20111017
  Receipt Date: 20121024
  Transmission Date: 20130627
  Serious: Yes (Death, Other)
  Sender: FDA-Public Use
  Company Number: PHHY2010CA09360

PATIENT
  Sex: Male
  Weight: 58.96 kg

DRUGS (4)
  1. CLOZARIL [Suspect]
     Indication: SCHIZOPHRENIA
     Dosage: UNK UKN, UNK
     Route: 048
     Dates: start: 19990412
  2. CLOZARIL [Suspect]
     Dosage: 300 mg, BID
     Dates: start: 19990415, end: 20100210
  3. CHLORPHENIRAMINE [Concomitant]
     Dosage: 50 mg, BID
     Route: 048
  4. DOCUSATE SODIUM [Concomitant]
     Dosage: 100 mg, BID
     Route: 048

REACTIONS (2)
  - Myocardial infarction [Fatal]
  - Antipsychotic drug level above therapeutic [Unknown]
